FAERS Safety Report 16232942 (Version 3)
Quarter: 2019Q3

REPORT INFORMATION
  Report Type: Spontaneous
  Country: US (occurrence: US)
  Receive Date: 20190424
  Receipt Date: 20190719
  Transmission Date: 20191004
  Serious: No
  Sender: FDA-Public Use
  Company Number: US-PFIZER INC-2019169063

PATIENT
  Age: 66 Year
  Sex: Female

DRUGS (2)
  1. LYRICA [Suspect]
     Active Substance: PREGABALIN
     Indication: FIBROMYALGIA
     Dosage: 300 MG, DAILY
  2. LYRICA [Suspect]
     Active Substance: PREGABALIN
     Dosage: 150 MG, 3X/DAY
     Route: 048
     Dates: start: 20190215

REACTIONS (10)
  - Wrong dose [Unknown]
  - Tremor [Unknown]
  - Thinking abnormal [Unknown]
  - Feeling abnormal [Unknown]
  - Cold sweat [Unknown]
  - Aggression [Unknown]
  - Pain [Unknown]
  - Withdrawal syndrome [Unknown]
  - Sleep terror [Unknown]
  - Spinal pain [Unknown]
